FAERS Safety Report 18032694 (Version 1)
Quarter: 2020Q3

REPORT INFORMATION
  Report Type: Report from Study
  Country: US (occurrence: US)
  Receive Date: 20200716
  Receipt Date: 20200716
  Transmission Date: 20201103
  Serious: Yes (Other)
  Sender: FDA-Public Use
  Company Number: US-GILEAD-2020-0482879

PATIENT
  Sex: Female

DRUGS (2)
  1. AXICABTAGENE CILOLEUCEL [Suspect]
     Active Substance: AXICABTAGENE CILOLEUCEL
     Indication: NON-HODGKIN^S LYMPHOMA
     Dosage: UNK
     Route: 042
     Dates: start: 2018, end: 2018
  2. IGG PURISSIMUS [Concomitant]
     Dosage: UNKNOWN

REACTIONS (6)
  - Unevaluable event [Unknown]
  - Anxiety [Unknown]
  - Tremor [Unknown]
  - Hallucination, visual [Unknown]
  - Ill-defined disorder [Unknown]
  - Blood immunoglobulin G decreased [Not Recovered/Not Resolved]
